FAERS Safety Report 18783635 (Version 1)
Quarter: 2021Q1

REPORT INFORMATION
  Report Type: Spontaneous
  Country: US (occurrence: US)
  Receive Date: 20210125
  Receipt Date: 20210125
  Transmission Date: 20210419
  Serious: Yes (Other)
  Sender: FDA-Public Use
  Company Number: US-PFIZER INC-2021050321

PATIENT
  Age: 61 Year
  Sex: Female

DRUGS (1)
  1. XELJANZ XR [Suspect]
     Active Substance: TOFACITINIB CITRATE
     Indication: RHEUMATOID ARTHRITIS
     Dosage: 11 MG, 1X/DAY
     Route: 048
     Dates: start: 20201221

REACTIONS (12)
  - Fall [Unknown]
  - Confusional state [Unknown]
  - Haemorrhage [Unknown]
  - Hypersensitivity [Unknown]
  - Vomiting [Unknown]
  - Contusion [Unknown]
  - Dizziness [Unknown]
  - Pruritus [Unknown]
  - Nausea [Unknown]
  - Oral mucosal blistering [Unknown]
  - Headache [Unknown]
  - Vision blurred [Unknown]
